FAERS Safety Report 5874063-0 (Version None)
Quarter: 2008Q3

REPORT INFORMATION
  Report Type: 
  Country: None (occurrence: None)
  Receive Date: 20080908
  Receipt Date: 20080902
  Transmission Date: 20090109
  Serious: Yes (Other)
  Sender: FDA-Public Use
  Company Number: PL-AVENTIS-200818298GDDC

PATIENT
  Age: 58 Year
  Sex: Female
  Weight: 56.5 kg

DRUGS (1)
  1. ARAVA [Suspect]
     Indication: RHEUMATOID ARTHRITIS
     Route: 048
     Dates: start: 20050712, end: 20050909

REACTIONS (1)
  - ALANINE AMINOTRANSFERASE INCREASED [None]
